FAERS Safety Report 24852496 (Version 1)
Quarter: 2025Q1

REPORT INFORMATION
  Report Type: Spontaneous
  Country: DE (occurrence: DE)
  Receive Date: 20250116
  Receipt Date: 20250116
  Transmission Date: 20250409
  Serious: No
  Sender: ASTELLAS
  Company Number: DE-ASTELLAS-2025-AER-001794

PATIENT
  Age: 72 Year
  Sex: Female

DRUGS (1)
  1. VEOZAH [Suspect]
     Active Substance: FEZOLINETANT
     Indication: Night sweats
     Route: 065

REACTIONS (2)
  - Intentional product use issue [Unknown]
  - Off label use [Unknown]
